FAERS Safety Report 7949736-6 (Version None)
Quarter: 2011Q4

REPORT INFORMATION
  Report Type: 
  Country: None (occurrence: None)
  Receive Date: 20111130
  Receipt Date: 20111124
  Transmission Date: 20120403
  Serious: Yes (Other)
  Sender: FDA-Public Use
  Company Number: BR-PFIZER INC-2010022002

PATIENT
  Age: 50 Year
  Sex: Female
  Weight: 65 kg

DRUGS (16)
  1. VARENICLINE TARTRATE [Suspect]
     Dosage: UNK
     Route: 048
     Dates: start: 20110501, end: 20110101
  2. DEPAKENE [Concomitant]
     Indication: DEPRESSION
     Dosage: 40 MG, AT NIGHT
     Route: 048
     Dates: start: 20050101
  3. VARENICLINE TARTRATE [Suspect]
     Dosage: 1 MG, 2X/DAY
     Route: 048
     Dates: start: 20110101, end: 20111101
  4. DEPAKENE [Concomitant]
     Indication: OBSESSIVE-COMPULSIVE DISORDER
  5. NEULEPTIL [Concomitant]
     Indication: SLEEP DISORDER THERAPY
     Dosage: 40 MG AT NIGHT
     Dates: start: 20050101
  6. VARENICLINE TARTRATE [Suspect]
     Indication: SMOKING CESSATION THERAPY
     Dosage: 0.5 MG, 1X/DAY
     Route: 048
     Dates: start: 20100212, end: 20100101
  7. VARENICLINE TARTRATE [Suspect]
     Dosage: 1 MG, 2X/DAY
     Route: 048
     Dates: start: 20100312, end: 20100512
  8. DEPAKENE [Concomitant]
     Indication: INSOMNIA
  9. SERTRALINE HYDROCHLORIDE [Concomitant]
     Indication: DEPRESSION
     Dosage: 40 MG (TWO TABLETS OF 20MG), ONCE DAILY
     Route: 048
     Dates: start: 20050101
  10. SERTRALINE HYDROCHLORIDE [Concomitant]
     Indication: OBSESSIVE-COMPULSIVE DISORDER
     Dosage: 40 MG, (STRENGTH 20MG AT 2 TABLETS IN THE MORNING)
  11. CLONAZEPAM [Concomitant]
     Indication: OBSESSIVE-COMPULSIVE DISORDER
  12. NEULEPTIL [Concomitant]
     Indication: OBSESSIVE-COMPULSIVE DISORDER
     Dosage: 2%, 20 DROPS
  13. VARENICLINE TARTRATE [Suspect]
     Dosage: 1 MG, EVERY 12 HOURS
     Route: 048
     Dates: start: 20100706, end: 20100101
  14. VARENICLINE TARTRATE [Suspect]
     Dosage: 0.5 MG, 2X/DAY
     Route: 048
     Dates: start: 20110804, end: 20110901
  15. NEULEPTIL [Concomitant]
     Indication: DEPRESSION
  16. CLONAZEPAM [Concomitant]
     Indication: DEPRESSION
     Dosage: 2MG TWICE DAILY (ONE TABLET AT NIGHT AND ONE TABLET IN THE MORNING)
     Route: 048
     Dates: start: 20050101

REACTIONS (26)
  - HEART RATE INCREASED [None]
  - DEPRESSED MOOD [None]
  - WITHDRAWAL SYNDROME [None]
  - NERVOUSNESS [None]
  - TREMOR [None]
  - NAUSEA [None]
  - SUICIDAL IDEATION [None]
  - WEIGHT INCREASED [None]
  - FEELING ABNORMAL [None]
  - FEELING GUILTY [None]
  - TOBACCO USER [None]
  - ABNORMAL DREAMS [None]
  - PSYCHIATRIC SYMPTOM [None]
  - FEAR [None]
  - DECREASED APPETITE [None]
  - TREATMENT NONCOMPLIANCE [None]
  - DYSGEUSIA [None]
  - WEIGHT DECREASED [None]
  - DEPRESSION [None]
  - PALPITATIONS [None]
  - GASTRITIS [None]
  - PERIPHERAL COLDNESS [None]
  - EMPHYSEMA [None]
  - DIZZINESS [None]
  - ABNORMAL BEHAVIOUR [None]
  - CRYING [None]
